FAERS Safety Report 5697803-2 (Version None)
Quarter: 2008Q2

REPORT INFORMATION
  Report Type: 
  Country: None (occurrence: None)
  Receive Date: 20080408
  Receipt Date: 20080402
  Transmission Date: 20081010
  Serious: Yes (Hospitalization)
  Sender: FDA-Public Use
  Company Number: US-MERCK-0804USA00952

PATIENT
  Age: 64 Year
  Sex: Male

DRUGS (5)
  1. VYTORIN [Suspect]
     Indication: HYPERCHOLESTEROLAEMIA
     Route: 048
     Dates: start: 20050201, end: 20080331
  2. PLAVIX [Concomitant]
     Route: 065
  3. SPIRONO [Concomitant]
     Route: 065
  4. TOPROL-XL [Concomitant]
     Route: 065
  5. ALTACE [Concomitant]
     Route: 065

REACTIONS (3)
  - CARDIAC DISORDER [None]
  - DYSPNOEA [None]
  - MYALGIA [None]
